FAERS Safety Report 18499647 (Version 2)
Quarter: 2021Q1

REPORT INFORMATION
  Report Type: Spontaneous
  Country: US (occurrence: US)
  Receive Date: 20201113
  Receipt Date: 20210115
  Transmission Date: 20210419
  Serious: No
  Sender: FDA-Public Use
  Company Number: US-GLAXOSMITHKLINE-US2020AMR223568

PATIENT
  Sex: Male
  Weight: 84.49 kg

DRUGS (2)
  1. VENTOLIN HFA [Suspect]
     Active Substance: ALBUTEROL SULFATE
     Indication: WHEEZING
  2. VENTOLIN HFA [Suspect]
     Active Substance: ALBUTEROL SULFATE
     Indication: ASTHMA
     Dosage: 1 PUFF(S), 6D AS NEEDED
     Route: 055

REACTIONS (3)
  - Sleep disorder due to a general medical condition [Unknown]
  - Respiratory tract congestion [Unknown]
  - Productive cough [Unknown]
